FAERS Safety Report 6155148-0 (Version None)
Quarter: 2009Q2

REPORT INFORMATION
  Report Type: 
  Country: None (occurrence: None)
  Receive Date: 20090415
  Receipt Date: 20090406
  Transmission Date: 20091009
  Serious: No
  Sender: FDA-Public Use
  Company Number: US-JNJFOC-20090401821

PATIENT
  Sex: Male
  Weight: 126.1 kg

DRUGS (10)
  1. FENTANYL TRANSDERMAL SYSTEM [Suspect]
     Indication: NEUROPATHY PERIPHERAL
     Route: 062
  2. FENTANYL TRANSDERMAL SYSTEM [Suspect]
     Indication: BACK PAIN
     Route: 062
  3. SIMVASTATIN [Concomitant]
     Indication: BLOOD CHOLESTEROL INCREASED
     Route: 048
  4. ASPIRIN [Concomitant]
     Indication: CARDIAC DISORDER
     Route: 048
  5. ADVAIR HFA [Concomitant]
     Indication: RESPIRATORY DISORDER
     Dosage: 250 MG - 50 MG ONCE DAILY
     Route: 055
  6. LYRICA [Concomitant]
     Indication: NEUROPATHY PERIPHERAL
     Route: 048
  7. SINGULAIR [Concomitant]
     Indication: SINUS DISORDER
     Route: 048
  8. DOXAZOSIN MESYLATE [Concomitant]
     Indication: PROSTATIC DISORDER
     Route: 048
  9. SYNTHROID [Concomitant]
     Indication: THYROID DISORDER
     Route: 048
  10. ASTELIN [Concomitant]
     Indication: SINUS DISORDER
     Dosage: 2 TIMES A DAY
     Route: 045

REACTIONS (3)
  - CHILLS [None]
  - DIZZINESS [None]
  - DRUG DOSE OMISSION [None]
